FAERS Safety Report 6549309-6 (Version None)
Quarter: 2010Q1

REPORT INFORMATION
  Report Type: 
  Country: None (occurrence: None)
  Receive Date: 20100125
  Receipt Date: 20100111
  Transmission Date: 20100710
  Serious: Yes (Hospitalization, Other)
  Sender: FDA-Public Use
  Company Number: PHEH2009US14037

PATIENT
  Sex: Female

DRUGS (10)
  1. RECLAST [Suspect]
     Dosage: UNK
     Dates: start: 20080301
  2. RECLAST [Suspect]
     Dosage: UNK
     Dates: start: 20090301
  3. RANITIDINE [Concomitant]
  4. ATENOLOL [Concomitant]
  5. SINGULAIR [Concomitant]
  6. SIMVASTATIN [Concomitant]
  7. ZOLPIDEM [Concomitant]
  8. VITAMIN E [Concomitant]
     Dosage: 400 UNITS, QD
  9. CALTRATE [Suspect]
  10. CALCIUM WITH VITAMIN D [Concomitant]

REACTIONS (10)
  - DENTAL CARIES [None]
  - DRY MOUTH [None]
  - FALL [None]
  - IMPAIRED HEALING [None]
  - INSOMNIA [None]
  - ORAL INFECTION [None]
  - SPEECH DISORDER [None]
  - TOOTH DISORDER [None]
  - TOOTH EXTRACTION [None]
  - TOOTH INJURY [None]
